FAERS Safety Report 23402958 (Version 1)
Quarter: 2024Q1

REPORT INFORMATION
  Report Type: Spontaneous
  Country: US (occurrence: US)
  Receive Date: 20240115
  Receipt Date: 20240115
  Transmission Date: 20240410
  Serious: Yes (Hospitalization, Other)
  Sender: FDA-Public Use
  Company Number: US-MLMSERVICE-20240103-4755805-1

PATIENT
  Age: 26 Year
  Sex: Male

DRUGS (14)
  1. BUPRENORPHINE\NALOXONE [Suspect]
     Active Substance: BUPRENORPHINE\NALOXONE
     Indication: Product used for unknown indication
     Dosage: WAS PLACED ON THREE TIMES DAILY DOSING
     Route: 060
  2. BUPRENORPHINE\NALOXONE [Suspect]
     Active Substance: BUPRENORPHINE\NALOXONE
     Dosage: NEXT 6 HOURS, RECEIVED 24 MG
     Route: 060
  3. BUPRENORPHINE\NALOXONE [Suspect]
     Active Substance: BUPRENORPHINE\NALOXONE
     Route: 060
  4. BUPRENORPHINE\NALOXONE [Suspect]
     Active Substance: BUPRENORPHINE\NALOXONE
     Dosage: IN 24 HOURS
     Route: 060
  5. BUPRENORPHINE\NALOXONE [Suspect]
     Active Substance: BUPRENORPHINE\NALOXONE
     Route: 060
  6. METHADONE [Concomitant]
     Active Substance: METHADONE HYDROCHLORIDE
     Indication: Product used for unknown indication
  7. METHADONE [Concomitant]
     Active Substance: METHADONE HYDROCHLORIDE
  8. METHADONE [Concomitant]
     Active Substance: METHADONE HYDROCHLORIDE
  9. CHLORDIAZEPOXIDE [Concomitant]
     Active Substance: CHLORDIAZEPOXIDE
     Indication: Alcohol withdrawal syndrome
     Dosage: IN 24 HOURS
     Route: 048
  10. CHLORDIAZEPOXIDE [Concomitant]
     Active Substance: CHLORDIAZEPOXIDE
     Route: 048
  11. METHAMPHETAMINE [Concomitant]
     Active Substance: METHAMPHETAMINE
     Indication: Product used for unknown indication
  12. COCAINE [Concomitant]
     Active Substance: COCAINE
     Indication: Product used for unknown indication
  13. HYDROMORPHONE [Concomitant]
     Active Substance: HYDROMORPHONE
     Indication: Product used for unknown indication
     Dosage: IN 24 HOURS
     Route: 042
  14. LORAZEPAM [Concomitant]
     Active Substance: LORAZEPAM
     Indication: Product used for unknown indication
     Dosage: IN 24 HOURS
     Route: 042

REACTIONS (1)
  - Drug withdrawal syndrome [Unknown]
